FAERS Safety Report 17847779 (Version 1)
Quarter: 2020Q2

REPORT INFORMATION
  Report Type: Spontaneous
  Country: US (occurrence: US)
  Receive Date: 20200601
  Receipt Date: 20200601
  Transmission Date: 20200714
  Serious: No
  Sender: FDA-Public Use
  Company Number: US-ELI_LILLY_AND_COMPANY-US202005009300

PATIENT
  Age: 44 Year
  Sex: Female

DRUGS (1)
  1. REYVOW [Suspect]
     Active Substance: LASMIDITAN
     Indication: MIGRAINE
     Dosage: UNK UNK, UNKNOWN
     Route: 048
     Dates: start: 20200505, end: 20200505

REACTIONS (3)
  - Dyspnoea [Recovered/Resolved]
  - Panic attack [Recovered/Resolved]
  - Autoscopy [Recovered/Resolved]

NARRATIVE: CASE EVENT DATE: 20200505
